FAERS Safety Report 13194211 (Version 1)
Quarter: 2017Q1

REPORT INFORMATION
  Report Type: Report from Study
  Country: None (occurrence: US)
  Receive Date: 20170207
  Receipt Date: 20170207
  Transmission Date: 20170428
  Serious: Yes (Hospitalization, Other)
  Sender: FDA-Public Use
  Company Number: US-ABBVIE-17K-163-1864126-00

PATIENT
  Age: 43 Year
  Sex: Female
  Weight: 59.02 kg

DRUGS (2)
  1. MULTI-VITAMIN [Concomitant]
     Active Substance: .ALPHA.-TOCOPHEROL ACETATE, DL-\ASCORBIC ACID\CYANOCOBALAMIN\FLUORIDE ION\FOLIC ACID\NIACIN\PYRIDOXINE\RIBOFLAVIN\THIAMINE\VITAMIN A\VITAMIN D
     Indication: VITAMIN SUPPLEMENTATION
  2. HUMIRA [Suspect]
     Active Substance: ADALIMUMAB
     Indication: RHEUMATOID ARTHRITIS
     Route: 058
     Dates: start: 2015

REACTIONS (7)
  - Loss of consciousness [Recovered/Resolved]
  - Exposure during pregnancy [Unknown]
  - Haemoglobin decreased [Recovering/Resolving]
  - Abortion spontaneous [Recovered/Resolved]
  - Foetal death [Unknown]
  - Post abortion haemorrhage [Recovering/Resolving]
  - Abdominal pain [Recovering/Resolving]

NARRATIVE: CASE EVENT DATE: 20170124
